FAERS Safety Report 5697538-6 (Version None)
Quarter: 2008Q2

REPORT INFORMATION
  Report Type: 
  Country: None (occurrence: None)
  Receive Date: 20080408
  Receipt Date: 20080327
  Transmission Date: 20081010
  Serious: Yes (Other)
  Sender: FDA-Public Use
  Company Number: US-AMGEN-QUU271679

PATIENT
  Sex: Female

DRUGS (1)
  1. ENBREL [Suspect]
     Indication: RHEUMATOID ARTHRITIS
     Route: 058
     Dates: start: 19991201

REACTIONS (11)
  - ARTHRITIS [None]
  - DEMYELINATION [None]
  - DENTAL CARIES [None]
  - FATIGUE [None]
  - HEADACHE [None]
  - HOLMES-ADIE PUPIL [None]
  - NASOPHARYNGITIS [None]
  - NERVE INJURY [None]
  - NEUROLOGICAL INFECTION [None]
  - PROCEDURAL COMPLICATION [None]
  - VASCULITIS [None]
